FAERS Safety Report 23428535 (Version 2)
Quarter: 2024Q1

REPORT INFORMATION
  Report Type: Spontaneous
  Country: US (occurrence: US)
  Receive Date: 20240122
  Receipt Date: 20240126
  Transmission Date: 20240410
  Serious: No
  Sender: FDA-Public Use
  Company Number: US-NEUROCRINE BIOSCIENCES INC.-2024NBI00236

PATIENT
  Age: 77 Year
  Sex: Female

DRUGS (2)
  1. INGREZZA [Suspect]
     Active Substance: VALBENAZINE
     Indication: Tardive dyskinesia
     Dosage: UNK
     Route: 065
  2. CARBIDOPA [Concomitant]
     Active Substance: CARBIDOPA
     Indication: Parkinson^s disease
     Dosage: 4 TIMES A DAY

REACTIONS (2)
  - Speech disorder [Unknown]
  - Gait disturbance [Unknown]
